FAERS Safety Report 8571812-8 (Version None)
Quarter: 2012Q3

REPORT INFORMATION
  Report Type: 
  Country: None (occurrence: None)
  Receive Date: 20120806
  Receipt Date: 20120802
  Transmission Date: 20120928
  Serious: Yes (Life-Threatening, Hospitalization)
  Sender: FDA-Public Use
  Company Number: FR-JNJFOC-20120516365

PATIENT
  Sex: Female
  Weight: 65 kg

DRUGS (2)
  1. TEGRETOL [Concomitant]
     Indication: AFFECTIVE DISORDER
     Route: 048
     Dates: start: 20090520
  2. RISPERDAL CONSTA [Suspect]
     Indication: PSYCHOTIC DISORDER
     Route: 030
     Dates: start: 20090520

REACTIONS (2)
  - CEREBROVASCULAR ACCIDENT [None]
  - VIITH NERVE PARALYSIS [None]
